FAERS Safety Report 4604031-8 (Version None)
Quarter: 2005Q1

REPORT INFORMATION
  Report Type: 
  Country: None (occurrence: None)
  Receive Date: 20050310
  Receipt Date: 20050303
  Transmission Date: 20050727
  Serious: Yes (Other)
  Sender: FDA-Public Use
  Company Number: PHBS2005BR03208

PATIENT
  Age: 35 Year
  Sex: Female

DRUGS (1)
  1. CATAFLAM [Suspect]
     Dosage: 75 MG, ONCE/SINGLE
     Dates: start: 20030201

REACTIONS (4)
  - INJECTION SITE INFLAMMATION [None]
  - INJECTION SITE PAIN [None]
  - INJECTION SITE SCAR [None]
  - MEDICATION ERROR [None]
